FAERS Safety Report 9308172 (Version 2)
Quarter: 2013Q3

REPORT INFORMATION
  Report Type: Spontaneous
  Country: US (occurrence: US)
  Receive Date: 20130524
  Receipt Date: 20130708
  Transmission Date: 20140515
  Serious: Yes (Other)
  Sender: FDA-Public Use
  Company Number: US-PERRIGO-13US005223

PATIENT
  Age: 3 Year
  Sex: Female
  Weight: 13.61 kg

DRUGS (2)
  1. IBUPROFEN 20 MG/ML CHILD GRAPE 660 [Suspect]
     Indication: ACCIDENTAL EXPOSURE TO PRODUCT
     Dosage: UNKNOWN, SINGLE
     Route: 048
     Dates: start: 20121023, end: 20121023
  2. VITAMINS [Concomitant]
     Indication: SUPPLEMENTATION THERAPY
     Dosage: UNKNOWN, UNKNOWN
     Route: 048

REACTIONS (5)
  - Unresponsive to stimuli [Recovered/Resolved]
  - Incoherent [Recovered/Resolved]
  - Accidental overdose [Unknown]
  - Lethargy [Recovered/Resolved]
  - Diarrhoea [Unknown]
